FAERS Safety Report 13398074 (Version 2)
Quarter: 2018Q3

REPORT INFORMATION
  Report Type: Spontaneous
  Country: CH (occurrence: CH)
  Receive Date: 20170403
  Receipt Date: 20180718
  Transmission Date: 20181010
  Serious: Yes (Death)
  Sender: FDA-Public Use
  Company Number: CH-TEVA-756042ISR

PATIENT
  Age: 64 Year
  Sex: Male

DRUGS (4)
  1. ENATEC [Concomitant]
     Active Substance: ENALAPRIL MALEATE
     Dosage: THERAPY ONLY TAKEN SHORT TERM
     Dates: start: 201303, end: 2013
  2. CANSARTAN?MEPHA [Suspect]
     Active Substance: CANDESARTAN CILEXETIL
     Indication: FAMILIAL RISK FACTOR
     Route: 048
     Dates: start: 20170301
  3. SIMVASTATIN?MEPHA [Suspect]
     Active Substance: SIMVASTATIN
     Indication: FAMILIAL RISK FACTOR
     Dosage: 40 MILLIGRAM DAILY; 0?0?0?1
     Route: 048
     Dates: start: 20170301
  4. ANORO ELLIPTA [Concomitant]
     Active Substance: UMECLIDINIUM BROMIDE\VILANTEROL TRIFENATATE
     Indication: CHRONIC OBSTRUCTIVE PULMONARY DISEASE
     Dates: start: 201602

REACTIONS (1)
  - Myocardial infarction [Fatal]

NARRATIVE: CASE EVENT DATE: 20170324
